FAERS Safety Report 19634392 (Version 1)
Quarter: 2021Q3

REPORT INFORMATION
  Report Type: Spontaneous
  Country: US (occurrence: US)
  Receive Date: 20210729
  Receipt Date: 20210729
  Transmission Date: 20211014
  Serious: No
  Sender: FDA-Public Use
  Company Number: None

PATIENT
  Age: 63 Year
  Sex: Male

DRUGS (1)
  1. REVLIMID [Suspect]
     Active Substance: LENALIDOMIDE
     Indication: PLASMA CELL MYELOMA
     Route: 048
     Dates: start: 20210601

REACTIONS (5)
  - Hypotension [None]
  - Deep vein thrombosis [None]
  - Peripheral swelling [None]
  - Body temperature decreased [None]
  - Pain in extremity [None]

NARRATIVE: CASE EVENT DATE: 20210710
